FAERS Safety Report 13130522 (Version 1)
Quarter: 2017Q1

REPORT INFORMATION
  Report Type: Spontaneous
  Country: US (occurrence: US)
  Receive Date: 20170119
  Receipt Date: 20170119
  Transmission Date: 20170428
  Serious: Yes (Other)
  Sender: FDA-Public Use
  Company Number: US-WEST-WARD PHARMACEUTICALS CORP.-US-H14001-17-00073

PATIENT
  Age: 52 Year
  Sex: Male

DRUGS (3)
  1. MONTELUKAST [Concomitant]
     Active Substance: MONTELUKAST SODIUM
     Indication: PRODUCT USED FOR UNKNOWN INDICATION
     Route: 065
  2. ALBUTEROL. [Concomitant]
     Active Substance: ALBUTEROL
     Indication: PRODUCT USED FOR UNKNOWN INDICATION
     Route: 055
  3. TESTOSTERONE. [Suspect]
     Active Substance: TESTOSTERONE
     Indication: ASTHENIA
     Route: 030

REACTIONS (5)
  - Polycythaemia [Recovering/Resolving]
  - Cardiac failure congestive [Recovering/Resolving]
  - Self-medication [Unknown]
  - Overdose [Unknown]
  - Drug level increased [Unknown]
